FAERS Safety Report 12573062 (Version 1)
Quarter: 2016Q3

REPORT INFORMATION
  Report Type: Spontaneous
  Country: US (occurrence: None)
  Receive Date: 20160719
  Receipt Date: 20160719
  Transmission Date: 20161109
  Serious: Yes (Hospitalization)
  Sender: FDA-Public Use
  Company Number: None

PATIENT
  Age: 53 Year
  Sex: Male

DRUGS (7)
  1. CARMUSTINE [Suspect]
     Active Substance: CARMUSTINE
     Indication: STEM CELL TRANSPLANT
  2. CARMUSTINE [Suspect]
     Active Substance: CARMUSTINE
     Indication: PLASMA CELL MYELOMA
  3. CYTARABINE. [Suspect]
     Active Substance: CYTARABINE
     Indication: PLASMA CELL MYELOMA
  4. CARVEDILOL. [Suspect]
     Active Substance: CARVEDILOL
  5. CARMUSTINE [Suspect]
     Active Substance: CARMUSTINE
     Indication: PREMEDICATION
  6. ETOPOSIDE. [Suspect]
     Active Substance: ETOPOSIDE
  7. MELPHALAN [Suspect]
     Active Substance: MELPHALAN

REACTIONS (10)
  - Rash [None]
  - Staphylococcal sepsis [None]
  - Acute graft versus host disease [None]
  - Escherichia bacteraemia [None]
  - Encephalopathy [None]
  - Cardiac failure [None]
  - Delirium [None]
  - Urinary tract infection [None]
  - Septic shock [None]
  - Mucosal inflammation [None]

NARRATIVE: CASE EVENT DATE: 20160708
